FAERS Safety Report 4868339-3 (Version None)
Quarter: 2005Q4

REPORT INFORMATION
  Report Type: 
  Country: None (occurrence: None)
  Receive Date: 20051229
  Receipt Date: 20050401
  Transmission Date: 20060501
  Serious: Yes (Death)
  Sender: FDA-Public Use
  Company Number: US-MERCK-0504USA00488

PATIENT
  Age: 72 Year
  Sex: Female
  Weight: 64 kg

DRUGS (14)
  1. VIOXX [Suspect]
     Indication: RHEUMATOID ARTHRITIS
     Route: 048
     Dates: start: 19991101, end: 20020513
  2. [THERAPY UNSPECIFIED] [Concomitant]
     Indication: BLOOD PRESSURE
     Route: 065
  3. INSULIN R (INSULIN HUMAN) [Concomitant]
     Indication: DIABETES MELLITUS
     Route: 065
  4. HUMULIN L (INSULIN HUMAN ZINC) [Concomitant]
     Indication: DIABETES MELLITUS
     Route: 065
  5. ECHINACEA [Concomitant]
     Route: 065
     Dates: start: 19800101, end: 20020513
  6. CALCIUM (UNSPECIFIED) [Concomitant]
     Route: 065
     Dates: start: 19800101, end: 20020513
  7. CRANBERRY EXTRACT [Concomitant]
     Route: 065
     Dates: start: 19800101, end: 20020513
  8. ALOE [Concomitant]
     Route: 065
     Dates: start: 19800101, end: 20020513
  9. ASCORBIC ACID [Concomitant]
     Route: 065
     Dates: start: 19800101, end: 20020513
  10. ASPIRIN [Concomitant]
     Indication: PROPHYLAXIS
     Route: 065
     Dates: start: 19950101, end: 20020513
  11. HYPERICIN [Concomitant]
     Route: 065
  12. NITROSTAT [Concomitant]
     Indication: ANGINA PECTORIS
     Route: 065
  13. HYDROCODONE BITARTRATE [Concomitant]
     Indication: PAIN
     Route: 065
     Dates: start: 20010301
  14. IBUPROFEN [Concomitant]
     Indication: PAIN
     Route: 065
     Dates: start: 20010101

REACTIONS (4)
  - DYSPNOEA [None]
  - MYOCARDIAL INFARCTION [None]
  - PNEUMONIA [None]
  - SUDDEN DEATH [None]
